FAERS Safety Report 23898475 (Version 1)
Quarter: 2024Q2

REPORT INFORMATION
  Report Type: Report from Study
  Country: US (occurrence: US)
  Receive Date: 20240525
  Receipt Date: 20240525
  Transmission Date: 20240716
  Serious: Yes (Other)
  Sender: FDA-Public Use
  Company Number: US-ABBVIE-5713146

PATIENT
  Sex: Male

DRUGS (2)
  1. HUMIRA [Suspect]
     Active Substance: ADALIMUMAB
     Indication: Psoriatic arthropathy
     Dosage: CITRATE FREE, STRENGTH FORM-40 MG, HUMIRA DISCONTINUED FOR SIX WEEKS.
     Route: 058
     Dates: start: 20221213
  2. HUMIRA [Suspect]
     Active Substance: ADALIMUMAB
     Dosage: CITRATE FREE, STRENGTH FORM-40 MG ?FIRST ADMIN DATE MAY 2024
     Route: 058

REACTIONS (2)
  - Spinal fusion acquired [Not Recovered/Not Resolved]
  - Pain in extremity [Recovering/Resolving]
